FAERS Safety Report 12841485 (Version 1)
Quarter: 2016Q4

REPORT INFORMATION
  Report Type: Spontaneous
  Country: US (occurrence: US)
  Receive Date: 20161012
  Receipt Date: 20161012
  Transmission Date: 20170207
  Serious: Yes (Other)
  Sender: FDA-Public Use
  Company Number: US-SHIRE-US201613846

PATIENT
  Sex: Female

DRUGS (1)
  1. NATPARA (PARATHYROID HORMONE) [Suspect]
     Active Substance: PARATHYROID HORMONE
     Indication: HYPOCALCAEMIA
     Dosage: UNK, UNKNOWN
     Route: 058
     Dates: start: 2015

REACTIONS (3)
  - Tetany [Unknown]
  - Muscle spasms [Unknown]
  - Blood calcium decreased [Unknown]
